FAERS Safety Report 5121904-0 (Version None)
Quarter: 2006Q4

REPORT INFORMATION
  Report Type: 
  Country: None (occurrence: None)
  Receive Date: 20061006
  Receipt Date: 20060929
  Transmission Date: 20070319
  Serious: Yes (Hospitalization)
  Sender: FDA-Public Use
  Company Number: JP-MERCK-0610USA03039

PATIENT
  Age: 89 Year
  Sex: Male

DRUGS (9)
  1. COZAAR [Suspect]
     Indication: HYPERTENSION
     Route: 048
     Dates: start: 20051219, end: 20060907
  2. COZAAR [Suspect]
     Route: 048
     Dates: start: 20000101, end: 20051218
  3. NITOROL-R [Concomitant]
     Route: 048
  4. PEPCID [Concomitant]
     Route: 048
  5. MS ONSHIPPU [Concomitant]
     Route: 061
  6. TRANCOLON [Concomitant]
     Route: 048
  7. LAC-B [Concomitant]
     Route: 048
  8. ALOSENN [Concomitant]
     Route: 048
  9. PURSENNID [Concomitant]
     Route: 048

REACTIONS (1)
  - RHABDOMYOLYSIS [None]
